FAERS Safety Report 15098791 (Version 3)
Quarter: 2018Q3

REPORT INFORMATION
  Report Type: Spontaneous
  Country: ES (occurrence: ES)
  Receive Date: 20180702
  Receipt Date: 20180924
  Transmission Date: 20181010
  Serious: Yes (Other)
  Sender: FDA-Public Use
  Company Number: ES-ALEXION PHARMACEUTICALS INC.-A201808081

PATIENT
  Age: 6 Year
  Sex: Female

DRUGS (19)
  1. KANUMA [Suspect]
     Active Substance: SEBELIPASE ALFA
     Indication: LYSOSOMAL ACID LIPASE DEFICIENCY
     Dosage: 70 MG, UNK
     Route: 065
     Dates: start: 20171030
  2. KANUMA [Suspect]
     Active Substance: SEBELIPASE ALFA
     Dosage: 70 MG, UNK
     Route: 065
     Dates: start: 20171114
  3. KANUMA [Suspect]
     Active Substance: SEBELIPASE ALFA
     Dosage: 70 MG, UNK
     Route: 065
     Dates: start: 20180403
  4. KANUMA [Suspect]
     Active Substance: SEBELIPASE ALFA
     Dosage: 70 MG, UNK
     Route: 065
     Dates: start: 20180502
  5. KANUMA [Suspect]
     Active Substance: SEBELIPASE ALFA
     Dosage: 70 MG, UNK
     Route: 065
     Dates: start: 20171212
  6. KANUMA [Suspect]
     Active Substance: SEBELIPASE ALFA
     Dosage: 70 MG, UNK
     Route: 065
     Dates: start: 20171227
  7. KANUMA [Suspect]
     Active Substance: SEBELIPASE ALFA
     Dosage: 70 MG, UNK
     Route: 065
     Dates: start: 20180220
  8. KANUMA [Suspect]
     Active Substance: SEBELIPASE ALFA
     Dosage: 70 MG, UNK
     Route: 065
     Dates: start: 20180320
  9. ATORVASTATIN [Concomitant]
     Active Substance: ATORVASTATIN
     Indication: PRODUCT USED FOR UNKNOWN INDICATION
     Dosage: 10 MG / 48 H
     Route: 065
  10. AMOXICILLIN. [Concomitant]
     Active Substance: AMOXICILLIN
     Indication: PRODUCT USED FOR UNKNOWN INDICATION
     Dosage: 500 MG, Q8H
     Route: 065
  11. KANUMA [Suspect]
     Active Substance: SEBELIPASE ALFA
     Dosage: 70 MG, UNK
     Route: 065
     Dates: start: 20171128
  12. KANUMA [Suspect]
     Active Substance: SEBELIPASE ALFA
     Dosage: 70 MG, UNK
     Route: 065
     Dates: start: 20180109
  13. KANUMA [Suspect]
     Active Substance: SEBELIPASE ALFA
     Dosage: 70 MG, UNK
     Route: 065
     Dates: start: 20180123
  14. KANUMA [Suspect]
     Active Substance: SEBELIPASE ALFA
     Dosage: 70 MG, UNK
     Route: 065
     Dates: start: 20180206
  15. KANUMA [Suspect]
     Active Substance: SEBELIPASE ALFA
     Dosage: 70 MG, UNK
     Route: 065
     Dates: start: 20180515
  16. VITAMIN D3 [Concomitant]
     Active Substance: CHOLECALCIFEROL
     Indication: PRODUCT USED FOR UNKNOWN INDICATION
     Dosage: 1 ML / 24H
     Route: 065
  17. KANUMA [Suspect]
     Active Substance: SEBELIPASE ALFA
     Dosage: 70 MG, UNK
     Route: 065
     Dates: start: 20180306
  18. KANUMA [Suspect]
     Active Substance: SEBELIPASE ALFA
     Dosage: 70 MG, UNK
     Route: 065
     Dates: start: 20180417
  19. URSOCHOL [Concomitant]
     Active Substance: URSODIOL
     Indication: PRODUCT USED FOR UNKNOWN INDICATION
     Dosage: 150 MG / 24H
     Route: 065

REACTIONS (13)
  - Rash macular [Recovered/Resolved]
  - Pharyngeal erythema [Recovered/Resolved]
  - Aspartate aminotransferase increased [Recovered/Resolved]
  - Pyrexia [Recovered/Resolved]
  - Odynophagia [Recovered/Resolved]
  - Gamma-glutamyltransferase increased [Recovered/Resolved]
  - Viral infection [Unknown]
  - Hepatitis viral [Recovered/Resolved]
  - Alanine aminotransferase increased [Recovered/Resolved]
  - Oropharyngeal blistering [Recovered/Resolved]
  - Hepatomegaly [Recovered/Resolved]
  - Ear pain [Recovered/Resolved]
  - Free fatty acids increased [Recovered/Resolved]

NARRATIVE: CASE EVENT DATE: 20180506
